FAERS Safety Report 9564834 (Version 2)
Quarter: 2013Q4

REPORT INFORMATION
  Report Type: Spontaneous
  Country: BR (occurrence: BR)
  Receive Date: 20130930
  Receipt Date: 20131112
  Transmission Date: 20140711
  Serious: Yes (Death)
  Sender: FDA-Public Use
  Company Number: PHHY2013BR108213

PATIENT
  Sex: Male

DRUGS (1)
  1. FORASEQ [Suspect]
     Indication: BRONCHITIS
     Dosage: UNK BID

REACTIONS (2)
  - Death [Fatal]
  - Product physical issue [Unknown]
